FAERS Safety Report 16852320 (Version 2)
Quarter: 2019Q3

REPORT INFORMATION
  Report Type: Report from Study
  Country: MX (occurrence: MX)
  Receive Date: 20190925
  Receipt Date: 20190929
  Transmission Date: 20191005
  Serious: Yes (Death, Hospitalization)
  Sender: FDA-Public Use
  Company Number: PHHY2019MX222297

PATIENT
  Sex: Male
  Weight: 90 kg

DRUGS (4)
  1. REVOLADE [Suspect]
     Active Substance: ELTROMBOPAG
     Indication: PLATELET COUNT DECREASED
     Dosage: 25 MG AND ALSO 50 MG (STARTED ONE YEAR AGO)
     Route: 048
     Dates: end: 20190921
  2. GLIVEC [Suspect]
     Active Substance: IMATINIB MESYLATE
     Indication: LEUKAEMIA
     Dosage: UNK (TWO YEARS AGO)
     Route: 048
     Dates: end: 20190921
  3. REVOLADE [Suspect]
     Active Substance: ELTROMBOPAG
     Indication: HAEMOGLOBIN DECREASED
  4. EUTIROX [Concomitant]
     Active Substance: LEVOTHYROXINE SODIUM
     Indication: THYROID DISORDER
     Route: 065

REACTIONS (4)
  - Abdominal pain upper [Fatal]
  - Septic shock [Fatal]
  - Platelet count decreased [Unknown]
  - Haemoglobin decreased [Unknown]
